FAERS Safety Report 9652153 (Version 5)
Quarter: 2015Q2

REPORT INFORMATION
  Report Type: Spontaneous
  Country: US (occurrence: US)
  Receive Date: 20131029
  Receipt Date: 20150630
  Transmission Date: 20150821
  Serious: Yes (Hospitalization, Other)
  Sender: FDA-Public Use
  Company Number: US-009507513-1203USA02327

PATIENT
  Sex: Female
  Weight: 53.61 kg

DRUGS (6)
  1. ALENDRONATE SODIUM. [Suspect]
     Active Substance: ALENDRONATE SODIUM
     Indication: OSTEOPENIA
  2. FOSAMAX [Suspect]
     Active Substance: ALENDRONATE SODIUM
     Indication: OSTEOPOROSIS
     Dosage: 10 MG, UNK
     Route: 048
     Dates: start: 1995
  3. BONIVA [Suspect]
     Active Substance: IBANDRONATE SODIUM
     Indication: OSTEOPENIA
  4. ALENDRONATE SODIUM. [Suspect]
     Active Substance: ALENDRONATE SODIUM
     Indication: OSTEOPOROSIS
     Dosage: 70 MG, UNK
     Route: 048
     Dates: start: 20090504, end: 20100331
  5. FOSAMAX [Suspect]
     Active Substance: ALENDRONATE SODIUM
     Indication: OSTEOPENIA
     Dosage: 70 MG, UNK
     Route: 048
  6. BONIVA [Suspect]
     Active Substance: IBANDRONATE SODIUM
     Indication: OSTEOPOROSIS
     Dosage: 150 MG
     Dates: start: 20051101, end: 20061124

REACTIONS (48)
  - Low turnover osteopathy [Unknown]
  - Goitre [Unknown]
  - Off label use [Unknown]
  - Thyroidectomy [Unknown]
  - Anxiety [Unknown]
  - Hyperhidrosis [Unknown]
  - Speech disorder [Unknown]
  - Depression [Unknown]
  - Large intestine polyp [Unknown]
  - Ligament sprain [Unknown]
  - Chest pain [Unknown]
  - Constipation [Not Recovered/Not Resolved]
  - Malignant breast lump removal [Unknown]
  - Dental caries [Unknown]
  - Haemorrhagic anaemia [Recovering/Resolving]
  - Nephrolithiasis [Unknown]
  - Periarthritis [Unknown]
  - Breast cancer female [Unknown]
  - Bone graft [Unknown]
  - Lymphadenectomy [Unknown]
  - Pallor [Unknown]
  - Thyroid neoplasm [Unknown]
  - Polypectomy [Unknown]
  - Anxiety [Unknown]
  - Tooth erosion [Unknown]
  - Pulpitis dental [Unknown]
  - Cervical spinal stenosis [Unknown]
  - Syncope [Unknown]
  - Viral infection [Unknown]
  - Hip fracture [Unknown]
  - Femur fracture [Unknown]
  - Tooth deposit [Unknown]
  - Tooth fracture [Unknown]
  - Sinus disorder [Unknown]
  - Renal stone removal [Unknown]
  - Upper respiratory tract infection [Unknown]
  - Head injury [Unknown]
  - Cataract [Unknown]
  - Drug hypersensitivity [Unknown]
  - Nausea [Unknown]
  - Dizziness [Unknown]
  - Hallucination, auditory [Unknown]
  - Dental care [Unknown]
  - Intramedullary rod insertion [Unknown]
  - Dental plaque [Unknown]
  - Tooth fracture [Unknown]
  - Tooth injury [Unknown]
  - Hypothyroidism [Unknown]

NARRATIVE: CASE EVENT DATE: 1995
